FAERS Safety Report 8149447-0 (Version None)
Quarter: 2012Q1

REPORT INFORMATION
  Report Type: 
  Country: None (occurrence: None)
  Receive Date: 20120218
  Receipt Date: 20111017
  Transmission Date: 20120608
  Serious: No
  Sender: FDA-Public Use
  Company Number: US-ALLERGAN-1113651US

PATIENT

DRUGS (1)
  1. BOTULINUM TOXIN TYPE A [Suspect]
     Indication: DYSTONIA
     Dosage: 70 UNITS, SINGLE
     Route: 030

REACTIONS (2)
  - MUSCULAR WEAKNESS [None]
  - RADIAL NERVE PALSY [None]
